FAERS Safety Report 10051070 (Version 2)
Quarter: 2014Q2

REPORT INFORMATION
  Report Type: Spontaneous
  Country: US (occurrence: US)
  Receive Date: 20140401
  Receipt Date: 20140401
  Transmission Date: 20141212
  Serious: No
  Sender: FDA-Public Use
  Company Number: US-ASTRAZENECA-2013SE32034

PATIENT
  Age: 51 Year
  Sex: Female
  Weight: 72.6 kg

DRUGS (7)
  1. NEXIUM [Suspect]
     Indication: GASTROOESOPHAGEAL REFLUX DISEASE
     Route: 048
     Dates: start: 2009, end: 201307
  2. NEXIUM [Suspect]
     Indication: DYSPEPSIA
     Route: 048
     Dates: start: 2009, end: 201307
  3. NEXIUM [Suspect]
     Indication: GASTROOESOPHAGEAL REFLUX DISEASE
     Route: 048
  4. NEXIUM [Suspect]
     Indication: DYSPEPSIA
     Route: 048
  5. LISINOPRIL [Suspect]
     Route: 048
     Dates: start: 2012
  6. RANITIDINE [Suspect]
     Route: 065
     Dates: start: 20131124
  7. ANOTHER MEDICATION [Suspect]
     Route: 065

REACTIONS (13)
  - Hypertension [Unknown]
  - Gastrooesophageal reflux disease [Unknown]
  - Regurgitation [Unknown]
  - Pain [Unknown]
  - Sleep disorder [Unknown]
  - Sciatica [Unknown]
  - Back injury [Unknown]
  - Back pain [Unknown]
  - Epigastric discomfort [Unknown]
  - Abdominal pain upper [Unknown]
  - Abdominal discomfort [Unknown]
  - Vomiting [Unknown]
  - Drug dose omission [Unknown]
